FAERS Safety Report 5271486-8 (Version None)
Quarter: 2007Q1

REPORT INFORMATION
  Report Type: 
  Country: None (occurrence: None)
  Receive Date: 20070316
  Receipt Date: 20070305
  Transmission Date: 20070707
  Serious: Yes (Disabling)
  Sender: FDA-Public Use
  Company Number: APP200700030

PATIENT
  Age: 63 Year
  Sex: Male

DRUGS (2)
  1. SENSORCAINE-MPF (BUPIVACAINE HYDROCHLORIDE) [Suspect]
     Indication: BACK PAIN
     Dosage: UNK, INTRATHECAL
     Route: 037
     Dates: start: 20020101
  2. HYDROMORPHONE HCL [Suspect]
     Indication: BACK PAIN
     Dosage: UNK, INTRATHECAL
     Route: 037
     Dates: start: 20020101

REACTIONS (10)
  - CSF TEST ABNORMAL [None]
  - DRUG TOXICITY [None]
  - FAECAL INCONTINENCE [None]
  - FALL [None]
  - MYELOPATHY [None]
  - PAIN [None]
  - PARAPARESIS [None]
  - PLEOCYTOSIS [None]
  - POST PROCEDURAL COMPLICATION [None]
  - URINARY INCONTINENCE [None]
